FAERS Safety Report 7288610-8 (Version None)
Quarter: 2011Q1

REPORT INFORMATION
  Report Type: 
  Country: None (occurrence: None)
  Receive Date: 20110211
  Receipt Date: 20110131
  Transmission Date: 20110831
  Serious: Yes (Death)
  Sender: FDA-Public Use
  Company Number: JP-SANOFI-AVENTIS-2011SA005963

PATIENT
  Age: 66 Year
  Sex: Male
  Weight: 50 kg

DRUGS (15)
  1. SALOBEL [Concomitant]
     Indication: GOUT
     Route: 048
     Dates: start: 20090101
  2. 5-FU [Suspect]
     Route: 040
     Dates: start: 20110105, end: 20110105
  3. 5-FU [Suspect]
     Route: 041
     Dates: start: 20110105, end: 20110105
  4. GRANISETRON HCL [Concomitant]
     Indication: PREMEDICATION
     Route: 041
     Dates: start: 20101215, end: 20110105
  5. URALYT [Concomitant]
     Indication: GOUT
     Route: 048
     Dates: start: 20090101
  6. ELPLAT [Suspect]
     Indication: LARGE INTESTINE CARCINOMA
     Route: 041
     Dates: start: 20101215, end: 20101215
  7. DEXAMETHASONE SODIUM PHOSPHATE [Concomitant]
     Indication: PREMEDICATION
     Route: 041
     Dates: start: 20101215, end: 20110105
  8. 5-FU [Suspect]
     Indication: LARGE INTESTINE CARCINOMA
     Route: 040
     Dates: start: 20101215, end: 20101215
  9. 5-FU [Suspect]
     Route: 041
     Dates: start: 20101215, end: 20101215
  10. CALCICOL [Concomitant]
     Indication: PREMEDICATION
     Route: 041
     Dates: start: 20101215, end: 20110105
  11. GASTER [Concomitant]
     Indication: PREMEDICATION
     Route: 041
     Dates: start: 20101215, end: 20110105
  12. CALCIUM LEVOFOLINATE [Concomitant]
     Indication: LARGE INTESTINE CARCINOMA
     Route: 041
     Dates: start: 20101215, end: 20110105
  13. MAGNESIUM SULFATE [Concomitant]
     Indication: PREMEDICATION
     Route: 041
     Dates: start: 20101215, end: 20110105
  14. ELPLAT [Suspect]
     Route: 041
     Dates: start: 20110105, end: 20110105
  15. CHLOR-TRIMETON [Concomitant]
     Indication: PREMEDICATION
     Route: 041
     Dates: start: 20101215, end: 20110105

REACTIONS (1)
  - MYOCARDIAL INFARCTION [None]
